FAERS Safety Report 6889268-X (Version None)
Quarter: 2010Q3

REPORT INFORMATION
  Report Type: 
  Country: None (occurrence: None)
  Receive Date: 20100730
  Receipt Date: 20080125
  Transmission Date: 20110219
  Serious: No
  Sender: FDA-Public Use
  Company Number: US-PFIZER INC-2008009308

PATIENT
  Sex: Female

DRUGS (4)
  1. LIPITOR [Suspect]
     Indication: BLOOD CHOLESTEROL INCREASED
     Dates: end: 20070101
  2. ALBUTEROL [Concomitant]
     Route: 055
  3. NICODERM [Concomitant]
  4. WELLBUTRIN [Concomitant]

REACTIONS (1)
  - MYALGIA [None]
